FAERS Safety Report 23753234 (Version 1)
Quarter: 2024Q2

REPORT INFORMATION
  Report Type: Spontaneous
  Country: US (occurrence: US)
  Receive Date: 20240417
  Receipt Date: 20240417
  Transmission Date: 20240716
  Serious: No
  Sender: FDA-Public Use
  Company Number: US-BRISTOL-MYERS SQUIBB COMPANY-2024-060648

PATIENT
  Age: 93 Year
  Sex: Female

DRUGS (2)
  1. ELIQUIS [Suspect]
     Active Substance: APIXABAN
     Indication: Pulmonary embolism
     Route: 048
     Dates: start: 2023
  2. ELIQUIS [Suspect]
     Active Substance: APIXABAN
     Indication: Embolism venous

REACTIONS (2)
  - Expired product administered [Unknown]
  - Treatment noncompliance [Unknown]
